FAERS Safety Report 9860922 (Version 2)
Quarter: 2014Q1

REPORT INFORMATION
  Report Type: Spontaneous
  Country: GB (occurrence: GB)
  Receive Date: 20140202
  Receipt Date: 20140202
  Transmission Date: 20141002
  Serious: No
  Sender: FDA-Public Use
  Company Number: GB-ALLERGAN-1302279US

PATIENT
  Sex: Female

DRUGS (4)
  1. BOTOX [Suspect]
     Indication: SKIN WRINKLING
     Dosage: 6 UNITS, SINGLE
     Dates: start: 20081205, end: 20081205
  2. BOTOX [Suspect]
     Indication: SKIN WRINKLING
     Dosage: 4 UNITS, SINGLE
     Dates: start: 20081205, end: 20081205
  3. BOTOX [Suspect]
     Indication: SKIN WRINKLING
     Dosage: 19 UNITS, SINGLE
     Dates: start: 20081205, end: 20081205
  4. JUVEDERM ULTRA 3 [Suspect]
     Indication: SKIN WRINKLING
     Dosage: 5.5 UNK, UNK
     Dates: start: 20081205, end: 20081205

REACTIONS (1)
  - Eyelid oedema [Not Recovered/Not Resolved]
